FAERS Safety Report 4537650-8 (Version None)
Quarter: 2004Q4

REPORT INFORMATION
  Report Type: 
  Country: None (occurrence: None)
  Receive Date: 20041216
  Receipt Date: 20031110
  Transmission Date: 20050328
  Serious: Yes (Other)
  Sender: FDA-Public Use
  Company Number: CHPA2003US05204

PATIENT
  Age: 63 Year
  Sex: Male
  Weight: 68.6 kg

DRUGS (7)
  1. TRANSDERM SCOP [Suspect]
     Indication: POST PROCEDURAL VOMITING
     Dosage: 1 PATCHG Q72H, TRANSDERMAL
     Route: 062
     Dates: start: 20030701
  2. MELPHALAN (MELPHALAN) [Concomitant]
  3. PEPCID [Concomitant]
  4. VALACYCLOVIR HCL [Concomitant]
  5. ATENOLOL [Concomitant]
  6. SULFAMETHOXAZOLE [Concomitant]
  7. LORAZEPAM [Concomitant]

REACTIONS (6)
  - AGGRESSION [None]
  - AGITATION [None]
  - DRUG WITHDRAWAL SYNDROME [None]
  - IMPULSIVE BEHAVIOUR [None]
  - RESTLESSNESS [None]
  - VOMITING [None]
